FAERS Safety Report 4325602-2 (Version None)
Quarter: 2004Q1

REPORT INFORMATION
  Report Type: 
  Country: None (occurrence: None)
  Receive Date: 20040324
  Receipt Date: 20040309
  Transmission Date: 20041129
  Serious: Yes (Death)
  Sender: FDA-Public Use
  Company Number: USA-2004-0013708

PATIENT
  Age: 76 Year
  Sex: Female

DRUGS (2)
  1. OXYCONTIN [Suspect]
     Indication: CANCER PAIN
     Dosage: ORAL
     Route: 048
  2. OXYIR TABLET [Concomitant]

REACTIONS (3)
  - DISEASE PROGRESSION [None]
  - METASTASES TO BONE [None]
  - NON-SMALL CELL LUNG CANCER [None]
